FAERS Safety Report 25956658 (Version 1)
Quarter: 2025Q4

REPORT INFORMATION
  Report Type: Spontaneous
  Country: US (occurrence: US)
  Receive Date: 20251024
  Receipt Date: 20251024
  Transmission Date: 20260118
  Serious: No
  Sender: MARIUS PHARMACEUTICALS
  Company Number: US-MARIUSPHARMA-2025MAR00031

PATIENT
  Age: 66 Year
  Sex: Male

DRUGS (3)
  1. KYZATREX [Suspect]
     Active Substance: TESTOSTERONE UNDECANOATE
     Indication: Blood testosterone decreased
     Dates: start: 2025
  2. Namenda (Memantine) [Concomitant]
  3. Namenda (Memantine) [Concomitant]

REACTIONS (1)
  - Blood potassium increased [Unknown]

NARRATIVE: CASE EVENT DATE: 20250609
